FAERS Safety Report 10170901 (Version 1)
Quarter: 2014Q2

REPORT INFORMATION
  Report Type: Spontaneous
  Country: US (occurrence: None)
  Receive Date: 20140513
  Receipt Date: 20140513
  Transmission Date: 20141212
  Serious: Yes (Other)
  Sender: FDA-Public Use
  Company Number: None

PATIENT
  Age: 07 Year
  Sex: Female
  Weight: 24.95 kg

DRUGS (3)
  1. OMNIPOD INSULIN PUMP [Suspect]
  2. INSULIN (NOVOLOG V100) OMNIPOD INSULIN DELIVERY [Concomitant]
  3. DEXCOM PLATINUM G4 CONTINUOUS GLUCOSE MONITOR [Concomitant]

REACTIONS (2)
  - Blood glucose increased [None]
  - No therapeutic response [None]
